FAERS Safety Report 11996184 (Version 1)
Quarter: 2016Q1

REPORT INFORMATION
  Report Type: Spontaneous
  Country: US (occurrence: US)
  Receive Date: 20160203
  Receipt Date: 20160203
  Transmission Date: 20160526
  Serious: No
  Sender: FDA-Public Use
  Company Number: US-MALLINCKRODT-T201501497

PATIENT
  Age: 18 Year
  Sex: Female

DRUGS (1)
  1. OPTIMARK [Suspect]
     Active Substance: GADOVERSETAMIDE
     Indication: ARTHROGRAM
     Dosage: 0.1 MG, SINGLE, SLOWLY
     Route: 042
     Dates: start: 20150216, end: 20150216

REACTIONS (3)
  - Chills [Unknown]
  - Pain [Unknown]
  - Pyrexia [Unknown]

NARRATIVE: CASE EVENT DATE: 20150218
